FAERS Safety Report 11106783 (Version 4)
Quarter: 2015Q3

REPORT INFORMATION
  Report Type: Spontaneous
  Country: US (occurrence: US)
  Receive Date: 20150512
  Receipt Date: 20150706
  Transmission Date: 20151125
  Serious: No
  Sender: FDA-Public Use
  Company Number: US-PFIZER INC-2015141574

PATIENT
  Age: 67 Year
  Sex: Female
  Weight: 74.38 kg

DRUGS (31)
  1. HYDROCODONE [Suspect]
     Active Substance: HYDROCODONE
     Indication: MUSCULOSKELETAL PAIN
     Dosage: 10/325 4 TIMES A DAY
  2. KADIAN [Suspect]
     Active Substance: MORPHINE SULFATE
     Indication: NECK PAIN
  3. KADIAN [Suspect]
     Active Substance: MORPHINE SULFATE
     Indication: BACK PAIN
  4. POTASSIUM [Concomitant]
     Active Substance: POTASSIUM
     Dosage: 550 MG, UNK
  5. DOXAZOSIN [Concomitant]
     Active Substance: DOXAZOSIN\DOXAZOSIN MESYLATE
     Dosage: 2 MG, UNK
  6. TOPAMAX [Suspect]
     Active Substance: TOPIRAMATE
     Indication: PARAESTHESIA
     Dosage: 25MG 2 AT NIGHT
  7. TOPAMAX [Suspect]
     Active Substance: TOPIRAMATE
     Indication: MUSCULOSKELETAL PAIN
     Dosage: 50 MG, UNK
     Dates: end: 20150401
  8. KADIAN [Suspect]
     Active Substance: MORPHINE SULFATE
     Indication: MUSCULOSKELETAL PAIN
  9. CITRACAL PLUS D [Concomitant]
     Dosage: VIT. D 500/400 CALCIUM)
  10. MIRALAX [Concomitant]
     Active Substance: POLYETHYLENE GLYCOL 3350
     Dosage: UNK
  11. LETROZOLE. [Concomitant]
     Active Substance: LETROZOLE
     Dosage: 2.5 MG, UNK
  12. ALLEGRA [Concomitant]
     Active Substance: FEXOFENADINE HYDROCHLORIDE
     Dosage: 180 MG, UNK
  13. AMITRIPTYLINE [Concomitant]
     Active Substance: AMITRIPTYLINE
     Dosage: 25 MG, UNK
  14. GABAPENTIN. [Suspect]
     Active Substance: GABAPENTIN
     Indication: NECK PAIN
  15. GABAPENTIN. [Suspect]
     Active Substance: GABAPENTIN
     Indication: BACK PAIN
  16. MS CONTIN [Suspect]
     Active Substance: MORPHINE SULFATE
     Indication: NECK PAIN
     Dosage: 10 MG, 2X/DAY
  17. TOPAMAX [Suspect]
     Active Substance: TOPIRAMATE
     Indication: NECK PAIN
     Dosage: 25 MG, (1 TAB EVERY MORNING AND 2 AT BEDTIME)
  18. GABAPENTIN. [Suspect]
     Active Substance: GABAPENTIN
     Indication: PAIN IN EXTREMITY
     Dosage: 30 MG, 2X/DAY
  19. MS CONTIN [Suspect]
     Active Substance: MORPHINE SULFATE
     Indication: PAIN
     Dosage: 15 MG, 2X/DAY (1 TABLET EVERY 12HRS)
  20. OPANA [Suspect]
     Active Substance: OXYMORPHONE HYDROCHLORIDE
     Indication: BLOOD PRESSURE ABNORMAL
     Dosage: 25 MG, 1X/DAY
  21. KADIAN [Suspect]
     Active Substance: MORPHINE SULFATE
     Indication: PAIN IN EXTREMITY
     Dosage: UNK, 2X/DAY
  22. INTEGRA PLUS [Concomitant]
     Active Substance: ASCORBIC ACID\BIOTIN\CALCIUM PANTOTHENATE\FERROUS ASPARTO GLYCINATE\FERROUS FUMARATE\FOLIC ACID\NIACIN\PYRIDOXINE HYDROCHLORIDE\RIBOFLAVIN\THIAMINE MONONITRATE
     Dosage: 125 MG, UNK (IRON 1000 FOLIC ACID VITAMIN C)
  23. SIMVASTATIN. [Concomitant]
     Active Substance: SIMVASTATIN
     Dosage: 10 MG, UNK
  24. SAVELLA [Concomitant]
     Active Substance: MILNACIPRAN HYDROCHLORIDE
     Dosage: 25 MG, UNK
  25. GABAPENTIN. [Suspect]
     Active Substance: GABAPENTIN
     Indication: MUSCULOSKELETAL PAIN
  26. TOPAMAX [Suspect]
     Active Substance: TOPIRAMATE
     Indication: BURNING SENSATION
     Dosage: 50 MG, 2X/DAY (1 TAB 2 TIMES A DAY)
  27. HYDROCODONE [Suspect]
     Active Substance: HYDROCODONE
     Indication: PAIN
     Dosage: 4 DF, WEEKLY (FOUR TABLETS PER WEEK)
  28. HYDROCODONE [Suspect]
     Active Substance: HYDROCODONE
     Indication: NECK PAIN
     Dosage: UNK (AVERAGES BETWEEN 0-2 HYDROCODONE A DAY)
  29. FLUTICASONE PROPIONATE. [Concomitant]
     Active Substance: FLUTICASONE PROPIONATE
     Dosage: 50 MG, UNK
  30. VERAPAMIL [Concomitant]
     Active Substance: VERAPAMIL HYDROCHLORIDE
     Dosage: 120 MG, UNK
  31. BACLOFEN. [Concomitant]
     Active Substance: BACLOFEN
     Dosage: 10 MG, UNK

REACTIONS (1)
  - Drug ineffective [Not Recovered/Not Resolved]
